FAERS Safety Report 12461087 (Version 1)
Quarter: 2016Q2

REPORT INFORMATION
  Report Type: Spontaneous
  Country: FR (occurrence: FR)
  Receive Date: 20160613
  Receipt Date: 20160613
  Transmission Date: 20160815
  Serious: Yes (Other)
  Sender: FDA-Public Use
  Company Number: FR-BAYER-2016-108709

PATIENT
  Age: 64 Year
  Sex: Male

DRUGS (8)
  1. ROSUVASTATIN. [Concomitant]
     Active Substance: ROSUVASTATIN
  2. RABEPRAZOLE [Concomitant]
     Active Substance: RABEPRAZOLE
  3. BISOPROLOL [Concomitant]
     Active Substance: BISOPROLOL
  4. SERESTA [Concomitant]
     Active Substance: OXAZEPAM
  5. IXPRIM [Concomitant]
     Active Substance: ACETAMINOPHEN\TRAMADOL HYDROCHLORIDE
  6. NEXAVAR [Suspect]
     Active Substance: SORAFENIB
     Indication: MIXED HEPATOCELLULAR CHOLANGIOCARCINOMA
     Dosage: 800 MG, QD
     Route: 048
     Dates: start: 20160101, end: 20160204
  7. COVERAM [Concomitant]
     Active Substance: AMLODIPINE\PERINDOPRIL
  8. METFORMINE [Concomitant]
     Active Substance: METFORMIN HYDROCHLORIDE

REACTIONS (2)
  - Vasculitis [Recovering/Resolving]
  - Dermo-hypodermitis [Recovering/Resolving]

NARRATIVE: CASE EVENT DATE: 201601
